FAERS Safety Report 10717358 (Version 2)
Quarter: 2015Q1

REPORT INFORMATION
  Report Type: Spontaneous
  Country: US (occurrence: US)
  Receive Date: 20150116
  Receipt Date: 20150325
  Transmission Date: 20150721
  Serious: Yes (Hospitalization, Other)
  Sender: FDA-Public Use
  Company Number: US-AMGEN-USASP2015002455

PATIENT
  Age: 66 Year
  Sex: Female

DRUGS (2)
  1. ENBREL [Suspect]
     Active Substance: ETANERCEPT
     Indication: RHEUMATOID ARTHRITIS
     Dosage: 50 MG, QWK
     Route: 065
     Dates: start: 1999
  2. REMICADE [Concomitant]
     Active Substance: INFLIXIMAB
     Dosage: UNK

REACTIONS (17)
  - Rotator cuff syndrome [Recovered/Resolved]
  - Fall [Recovered/Resolved]
  - Eye pain [Not Recovered/Not Resolved]
  - Pain [Not Recovered/Not Resolved]
  - Depression [Not Recovered/Not Resolved]
  - Joint crepitation [Not Recovered/Not Resolved]
  - Infusion site pain [Recovered/Resolved]
  - Skin discolouration [Not Recovered/Not Resolved]
  - Tendon rupture [Recovered/Resolved]
  - Pain in extremity [Recovered/Resolved]
  - Stress [Not Recovered/Not Resolved]
  - Muscle disorder [Recovered/Resolved]
  - Haematoma [Not Recovered/Not Resolved]
  - International normalised ratio increased [Recovered/Resolved]
  - Peripheral swelling [Not Recovered/Not Resolved]
  - Contusion [Recovered/Resolved]
  - Cataract [Recovered/Resolved]

NARRATIVE: CASE EVENT DATE: 2008
